FAERS Safety Report 6232900-4 (Version None)
Quarter: 2009Q2

REPORT INFORMATION
  Report Type: 
  Country: None (occurrence: None)
  Receive Date: 20090612
  Receipt Date: 20090612
  Transmission Date: 20091009
  Serious: Yes (Other)
  Sender: FDA-Public Use
  Company Number: None

PATIENT
  Age: 63 Year
  Sex: Male
  Weight: 97.5234 kg

DRUGS (1)
  1. INVANZ [Suspect]
     Indication: PNEUMONIA
     Dosage: 50 ML DAILY IV DRIP
     Route: 041
     Dates: start: 20090511, end: 20090609

REACTIONS (8)
  - ANXIETY [None]
  - APPARENT LIFE THREATENING EVENT [None]
  - DIZZINESS [None]
  - FEELING ABNORMAL [None]
  - GASTRIC DISORDER [None]
  - HEADACHE [None]
  - LOCAL SWELLING [None]
  - NAUSEA [None]
